FAERS Safety Report 9212746 (Version 2)
Quarter: 2013Q2

REPORT INFORMATION
  Report Type: Spontaneous
  Country: US (occurrence: US)
  Receive Date: 20130405
  Receipt Date: 20130412
  Transmission Date: 20140414
  Serious: Yes (Other)
  Sender: FDA-Public Use
  Company Number: US-AMGEN-USASP2013022905

PATIENT
  Age: 61 Year
  Sex: Female
  Weight: 106.58 kg

DRUGS (16)
  1. ENBREL [Suspect]
     Indication: RHEUMATOID ARTHRITIS
     Dosage: 50 MG, QWK
     Route: 058
     Dates: start: 201204, end: 201302
  2. ADVAIR [Concomitant]
     Dosage: 250-50 MUG / DOSE, BID
  3. ALBUTEROL SULFATE [Concomitant]
     Dosage: (2,5 MG/3ML) 0.083% INHALATION PRN
  4. CALCIUM [Concomitant]
     Dosage: 1500 MG, QD
     Route: 048
  5. ENDOCET [Concomitant]
     Dosage: 10-325 MG Q8H, PRN
     Route: 048
  6. HUMALOG [Concomitant]
     Dosage: 100 UNIT/ML
     Route: 058
  7. K-DUR [Concomitant]
     Dosage: 20 MEQ, QD
     Route: 048
  8. LANTUS [Concomitant]
     Dosage: 100 UNIT/ML
     Route: 058
  9. LASIX                              /00032601/ [Concomitant]
     Dosage: 40 MG, TAKE TWO IN AM AND ONE AT NIGHT
     Route: 048
  10. LEVOTHYROXINE SODIUM [Concomitant]
     Dosage: 50 MUG, QD
     Route: 048
  11. LISINOPRIL [Concomitant]
     Dosage: 40 MG ORAL TWO TABLETS DAILY
     Route: 048
  12. OMEPRAZOLE [Concomitant]
     Dosage: 20 MG, ONE PO QD 30 MIN BEFORESUPPER
     Route: 048
  13. OPANA [Concomitant]
     Dosage: 20 MG, ONE PO Q12H
     Route: 048
  14. PLAQUENIL                          /00072602/ [Concomitant]
     Dosage: 200 MG, BID
     Route: 048
  15. PREDNISONE [Concomitant]
     Dosage: 5 MG, TAKE ONE PO Q AM 90
     Route: 048
  16. VICTOZA [Concomitant]
     Dosage: 18MG/3ML SUBCUTANEOUS 1.2 UNITS AT BEDTIME
     Route: 058

REACTIONS (5)
  - Purpura [Recovered/Resolved]
  - Wound complication [Recovered/Resolved]
  - Hypertension [Recovered/Resolved]
  - Blood glucose increased [Recovered/Resolved]
  - Skin infection [Recovered/Resolved]
